FAERS Safety Report 21490227 (Version 1)
Quarter: 2022Q4

REPORT INFORMATION
  Report Type: Spontaneous
  Country: US (occurrence: US)
  Receive Date: 20221021
  Receipt Date: 20221021
  Transmission Date: 20230113
  Serious: No
  Sender: FDA-Public Use
  Company Number: US-CELLTRION INC.-2022US013081

PATIENT

DRUGS (6)
  1. INFLECTRA [Suspect]
     Active Substance: INFLIXIMAB-DYYB
     Indication: Crohn^s disease
     Dosage: 800 MG AT 0, 2, 6 WEEKS, THEN EVERY 8 WEEKS (1ST LOADING DOSE). INFUSED 800 MG IN 1HR30MIN.
     Route: 065
     Dates: start: 20211222, end: 20211222
  2. INFLECTRA [Suspect]
     Active Substance: INFLIXIMAB-DYYB
     Dosage: 800 MG AT 0, 2, 6 WEEKS, THEN EVERY 8 WEEKS (2ND LOADING DOSE). INFUSED 800 MG IN 1HR42MIN.
     Route: 065
     Dates: start: 20220106, end: 20220106
  3. INFLECTRA [Suspect]
     Active Substance: INFLIXIMAB-DYYB
     Dosage: 800 MG AT 0, 2, 6 WEEKS, THEN EVERY 8 WEEKS (3RD LOADING DOSE). INFUSED 800 MG IN 1HR35MIN.
     Route: 065
     Dates: start: 20220203, end: 20220203
  4. INFLECTRA [Suspect]
     Active Substance: INFLIXIMAB-DYYB
     Dosage: 800 MG, EVERY 8 WEEKS, INFUSED 800 MG IN 1HR25MIN.
     Route: 065
     Dates: start: 20220331, end: 20220331
  5. INFLECTRA [Suspect]
     Active Substance: INFLIXIMAB-DYYB
     Dosage: 800 MG, EVERY 8 WEEKS, WEEKS SINCE LAST INFUSIION: 8.9, INFUSED 800 MG IN 1HR35MIN.
     Route: 065
     Dates: start: 20220601, end: 20220601
  6. INFLECTRA [Suspect]
     Active Substance: INFLIXIMAB-DYYB
     Dosage: 800 MG, EVERY 8 WEEKS, INFUSED 800 MG IN 1HR35MIN.
     Route: 065
     Dates: start: 20220727, end: 20220727

REACTIONS (4)
  - Diarrhoea [Unknown]
  - Therapeutic response shortened [Unknown]
  - Off label use [Unknown]
  - Intentional product use issue [Unknown]

NARRATIVE: CASE EVENT DATE: 20211222
